FAERS Safety Report 7738526-5 (Version None)
Quarter: 2011Q3

REPORT INFORMATION
  Report Type: 
  Country: None (occurrence: None)
  Receive Date: 20110906
  Receipt Date: 20110822
  Transmission Date: 20111222
  Serious: Yes (Other)
  Sender: FDA-Public Use
  Company Number: AUR-APL-2011-04332

PATIENT
  Age: 58 Year
  Sex: Female
  Weight: 88 kg

DRUGS (3)
  1. LISINOPRIL [Suspect]
     Indication: BLOOD PRESSURE ABNORMAL
     Dosage: (20 MG, 1 D), ORAL
     Route: 048
     Dates: start: 20050101
  2. GLUCOTROL [Suspect]
     Indication: DIABETES MELLITUS
     Dosage: 20 MG, (10 MG, 2 IN 1 D), ORAL
     Route: 048
  3. GLUCOPHAGE [Suspect]
     Indication: DIABETES MELLITUS
     Dosage: 1000 MG (500 MG, 2 IN 1 D), ORAL
     Route: 048
     Dates: start: 20110301

REACTIONS (10)
  - DIZZINESS [None]
  - HYPOAESTHESIA ORAL [None]
  - ASTHENIA [None]
  - NAUSEA [None]
  - VISION BLURRED [None]
  - PRURITUS [None]
  - UNEVALUABLE EVENT [None]
  - FATIGUE [None]
  - HEADACHE [None]
  - ORAL DISORDER [None]
